FAERS Safety Report 4631066-1 (Version None)
Quarter: 2005Q2

REPORT INFORMATION
  Report Type: 
  Country: None (occurrence: None)
  Receive Date: 20050408
  Receipt Date: 20050330
  Transmission Date: 20051028
  Serious: Yes (Other)
  Sender: FDA-Public Use
  Company Number: AU-ABBOTT-05P-008-0295921-00

PATIENT
  Age: 61 Year
  Sex: Male

DRUGS (2)
  1. GOPTEN [Suspect]
     Indication: BLOOD PRESSURE INCREASED
     Dates: start: 20000101
  2. IRBESARTAN [Concomitant]
     Indication: BLOOD PRESSURE INCREASED
     Route: 048

REACTIONS (1)
  - NERVE INJURY [None]
